FAERS Safety Report 5877498-5 (Version None)
Quarter: 2008Q3

REPORT INFORMATION
  Report Type: 
  Country: None (occurrence: None)
  Receive Date: 20080909
  Receipt Date: 20080828
  Transmission Date: 20090109
  Serious: Yes (Hospitalization)
  Sender: FDA-Public Use
  Company Number: 033300

PATIENT
  Age: 76 Year
  Sex: Female

DRUGS (7)
  1. WARFARIN SODIUM [Suspect]
     Indication: ATRIAL FIBRILLATION
     Dosage: 5 MG, QD, ORAL
     Route: 048
     Dates: start: 20080303, end: 20080326
  2. VERAPAMIL [Suspect]
     Dosage: 120 MG, QD
     Dates: start: 20070101, end: 20080607
  3. APIXABAN(APIXABAN) [Suspect]
     Indication: ATRIAL FIBRILLATION
     Dosage: 10 MG, QD, ORAL
     Route: 048
     Dates: start: 20080303, end: 20080326
  4. PLACEBO() [Suspect]
     Indication: ATRIAL FIBRILLATION
     Dosage: ONCE QD, ORAL
     Route: 048
     Dates: start: 20080303, end: 20080326
  5. SIMVASTATIN [Concomitant]
  6. EXEMESTANE [Concomitant]
  7. PAMIDRONATE DISODIUM [Concomitant]

REACTIONS (5)
  - CHEST PAIN [None]
  - DYSPNOEA [None]
  - HYPONATRAEMIA [None]
  - SINUS BRADYCARDIA [None]
  - SYNCOPE [None]
